FAERS Safety Report 12485430 (Version 1)
Quarter: 2016Q2

REPORT INFORMATION
  Report Type: Spontaneous
  Country: US (occurrence: US)
  Receive Date: 20160621
  Receipt Date: 20160621
  Transmission Date: 20160815
  Serious: No
  Sender: FDA-Public Use
  Company Number: US-SA-2015SA081707

PATIENT
  Age: 63 Year
  Sex: Female
  Weight: 63.5 kg

DRUGS (7)
  1. EPIPEN [Concomitant]
     Active Substance: EPINEPHRINE
     Indication: ANAPHYLACTIC REACTION
     Route: 030
     Dates: start: 20141031
  2. CEREZYME [Suspect]
     Active Substance: IMIGLUCERASE
     Indication: LIPIDOSIS
     Dosage: DOSE:56.6 UNIT(S)/KILOGRAM BODYWEIGHT
     Route: 042
     Dates: start: 20130628
  3. SODIUM CHLORIDE. [Concomitant]
     Active Substance: SODIUM CHLORIDE
     Indication: FLUSHING
     Dosage: 0.9 % 1-50 ML
     Route: 042
     Dates: start: 20141031
  4. CALCIUM/ZINC/MAGNESIUM [Concomitant]
     Route: 048
     Dates: start: 20130718
  5. CEREZYME [Suspect]
     Active Substance: IMIGLUCERASE
     Indication: LIPIDOSIS
     Dosage: DOSE:56.6 UNIT(S)/KILOGRAM BODYWEIGHT
     Route: 042
  6. NORMAL SALINE [Concomitant]
     Active Substance: SODIUM CHLORIDE
     Indication: FLUSHING
     Dosage: 0.9 % DILU
     Route: 042
     Dates: start: 20141031
  7. VITAMIN D3 [Concomitant]
     Active Substance: CHOLECALCIFEROL
     Route: 048
     Dates: start: 20130712

REACTIONS (1)
  - Malaise [Unknown]
